FAERS Safety Report 7418533-2 (Version None)
Quarter: 2011Q2

REPORT INFORMATION
  Report Type: 
  Country: None (occurrence: None)
  Receive Date: 20110407
  Receipt Date: 20100203
  Transmission Date: 20111010
  Serious: Yes (Other)
  Sender: FDA-Public Use
  Company Number: 2010SP007300

PATIENT
  Age: 28 Year
  Sex: Female
  Weight: 74.8435 kg

DRUGS (1)
  1. NUVARING [Suspect]
     Indication: CONTRACEPTION
     Dosage: 1 DF;VAG
     Route: 067
     Dates: start: 20070101, end: 20080101

REACTIONS (9)
  - ADJUSTMENT DISORDER WITH DEPRESSED MOOD [None]
  - DEEP VEIN THROMBOSIS [None]
  - TENDONITIS [None]
  - HAEMORRHOIDS [None]
  - CERVICAL DYSPLASIA [None]
  - WEIGHT DECREASED [None]
  - UPPER RESPIRATORY TRACT INFECTION [None]
  - TREATMENT NONCOMPLIANCE [None]
  - INFLUENZA LIKE ILLNESS [None]
